FAERS Safety Report 9743201 (Version 1)
Quarter: 2013Q4

REPORT INFORMATION
  Report Type: Spontaneous
  Country: US (occurrence: US)
  Receive Date: 20131210
  Receipt Date: 20131210
  Transmission Date: 20140711
  Serious: No
  Sender: FDA-Public Use
  Company Number: US-GILEAD-2009-0025037

PATIENT
  Sex: Male
  Weight: 87.54 kg

DRUGS (19)
  1. LETAIRIS [Suspect]
     Indication: PULMONARY ARTERIAL HYPERTENSION
     Route: 048
     Dates: start: 20090910
  2. ALLOPURINOL [Concomitant]
  3. DEMADEX [Concomitant]
  4. PROMETH/COD [Concomitant]
  5. SPIRONOLACTONE [Concomitant]
  6. ELAVIL [Concomitant]
  7. COREG [Concomitant]
  8. NORVASC [Concomitant]
  9. IPRATROPIUM [Concomitant]
  10. LANOXIN [Concomitant]
  11. ALLEGRA [Concomitant]
  12. FLONASE [Concomitant]
  13. ADVAIR [Concomitant]
  14. FENTANYL PATCH [Concomitant]
  15. ASPIRIN [Concomitant]
  16. ACIPHEX [Concomitant]
  17. PERCOCET [Concomitant]
  18. ALBUTEROL [Concomitant]
  19. NITROQUICK [Concomitant]

REACTIONS (1)
  - Eye infection [Unknown]
